FAERS Safety Report 12481040 (Version 2)
Quarter: 2016Q3

REPORT INFORMATION
  Report Type: Spontaneous
  Country: US (occurrence: US)
  Receive Date: 20160620
  Receipt Date: 20160720
  Transmission Date: 20161109
  Serious: Yes (Death, Hospitalization)
  Sender: FDA-Public Use
  Company Number: US-UNITED THERAPEUTICS-UNT-2016-009546

PATIENT
  Age: 52 Year
  Sex: Female
  Weight: 75.28 kg

DRUGS (2)
  1. REMODULIN [Suspect]
     Active Substance: TREPROSTINIL
     Indication: PULMONARY HYPERTENSION
     Dosage: 0.099 ?G/KG, CONTINUING
     Route: 041
     Dates: start: 20100520, end: 20160624
  2. TRACLEER [Concomitant]
     Active Substance: BOSENTAN
     Indication: PRODUCT USED FOR UNKNOWN INDICATION

REACTIONS (4)
  - Chills [Fatal]
  - Sepsis [Fatal]
  - Respiratory failure [Fatal]
  - Pyrexia [Fatal]

NARRATIVE: CASE EVENT DATE: 20160610
